FAERS Safety Report 6896389-4 (Version None)
Quarter: 2010Q3

REPORT INFORMATION
  Report Type: 
  Country: None (occurrence: None)
  Receive Date: 20100802
  Receipt Date: 20090211
  Transmission Date: 20110219
  Serious: No
  Sender: FDA-Public Use
  Company Number: US-PFIZER INC-2009171334

PATIENT
  Sex: Female
  Weight: 117.93 kg

DRUGS (10)
  1. NEURONTIN [Suspect]
     Indication: FIBROMYALGIA
     Dosage: UNK
     Dates: start: 20080101
  2. METOPROLOL TARTRATE [Concomitant]
  3. TRIAMTERENE [Concomitant]
  4. KLONOPIN [Concomitant]
  5. VITAMIN B-12 [Concomitant]
  6. VITAMIN D [Concomitant]
  7. IBUPROFEN [Concomitant]
  8. PONSTEL [Concomitant]
  9. DARVOCET [Concomitant]
  10. METHOCARBAMOL [Concomitant]

REACTIONS (5)
  - DRY EYE [None]
  - FATIGUE [None]
  - HYPERHIDROSIS [None]
  - SOMNOLENCE [None]
  - VISION BLURRED [None]
